FAERS Safety Report 25788319 (Version 1)
Quarter: 2025Q3

REPORT INFORMATION
  Report Type: Spontaneous
  Country: US (occurrence: US)
  Receive Date: 20250910
  Receipt Date: 20250910
  Transmission Date: 20251021
  Serious: No
  Sender: ELI LILLY AND COMPANY
  Company Number: US-ELI_LILLY_AND_COMPANY-US202509007471

PATIENT
  Age: 51 Year

DRUGS (1)
  1. TALTZ [Suspect]
     Active Substance: IXEKIZUMAB
     Indication: Psoriasis
     Route: 065

REACTIONS (3)
  - Mass [Unknown]
  - Psoriasis [Unknown]
  - Arthropod bite [Unknown]

NARRATIVE: CASE EVENT DATE: 20250830
